FAERS Safety Report 8822123 (Version 4)
Quarter: 2013Q1

REPORT INFORMATION
  Report Type: Report from Study
  Country: JP (occurrence: JP)
  Receive Date: 20121003
  Receipt Date: 20130325
  Transmission Date: 20140127
  Serious: Yes (Hospitalization)
  Sender: FDA-Public Use
  Company Number: JP-009507513-1208JPN007209

PATIENT
  Age: 32 Year
  Sex: Female
  Weight: 59.1 kg

DRUGS (31)
  1. ASENAPINE MALEATE-SCHIZOPHRENIA [Suspect]
     Indication: SCHIZOPHRENIA
     Dosage: 5 MG, 10 MG
     Route: 060
     Dates: start: 20120518, end: 20120601
  2. ASENAPINE MALEATE-SCHIZOPHRENIA [Suspect]
     Dosage: 5 MG OR 10 MG
     Route: 060
     Dates: start: 20120601, end: 20120627
  3. ASENAPINE MALEATE-SCHIZOPHRENIA [Suspect]
     Dosage: 10 MG, BID
     Dates: start: 20120627, end: 20120704
  4. LENDORMIN [Concomitant]
     Indication: INSOMNIA
     Dosage: 0.25 MG, QD
     Route: 048
     Dates: start: 20120404, end: 20130208
  5. LENDORMIN [Concomitant]
     Dosage: 0.5 MG, QD
     Route: 048
     Dates: start: 20130209
  6. WYPAX [Concomitant]
     Indication: INSOMNIA
     Dosage: 0.5 MG, QD
     Route: 048
     Dates: start: 20120404, end: 20130207
  7. WYPAX [Concomitant]
     Indication: ANXIETY
     Dosage: 0.5 MG, PRN
     Route: 048
     Dates: start: 20120410, end: 20130207
  8. WYPAX [Concomitant]
     Dosage: 0.5 MG, PRN
     Route: 048
     Dates: start: 20121019, end: 20130207
  9. PURSENNID (SENNOSIDES) [Concomitant]
     Indication: CONSTIPATION
     Dosage: 48 MG, QD
     Route: 048
     Dates: start: 20120330
  10. VENA [Concomitant]
     Indication: INSOMNIA
     Dosage: 50 MG, PRN
     Route: 048
     Dates: start: 20120410, end: 20130207
  11. VENA [Concomitant]
     Indication: ANXIETY
     Dosage: 25 MG, BID
     Route: 048
     Dates: start: 20120330, end: 20130207
  12. VENA [Concomitant]
     Dosage: 50 MG, PRN
     Route: 048
     Dates: start: 20121019, end: 20130207
  13. PARIET [Concomitant]
     Indication: PROPHYLAXIS AGAINST GASTROINTESTINAL ULCER
     Dosage: 10 MG, QD
     Route: 048
     Dates: start: 20120330
  14. AKINETON TABLETS [Concomitant]
     Indication: EXTRAPYRAMIDAL DISORDER
     Dosage: 1 MG, BID
     Route: 048
     Dates: start: 20120417
  15. RISUMIC [Concomitant]
     Indication: HYPOTENSION
     Dosage: 10 MG, BID
     Route: 048
     Dates: start: 20120330
  16. ATARAX P [Concomitant]
     Indication: INSOMNIA
     Dosage: 50 MG, BID
     Route: 048
     Dates: start: 20120506, end: 20130219
  17. ATARAX P [Concomitant]
     Indication: ANXIETY
     Dosage: 25 MG, PRN
     Route: 048
     Dates: start: 20120808, end: 20130207
  18. ATARAX P [Concomitant]
     Dosage: 50 MG, QD
     Route: 048
     Dates: start: 20130220, end: 20130226
  19. EFFORTIL [Concomitant]
     Indication: HYPOTENSION
     Dosage: 5 MG, TID
     Route: 048
     Dates: start: 20120330
  20. GASMOTIN [Concomitant]
     Indication: PROPHYLAXIS AGAINST GASTROINTESTINAL ULCER
     Dosage: 5 MG, TID
     Route: 048
     Dates: start: 20120330
  21. PANTOSIN [Concomitant]
     Indication: CONSTIPATION
     Dosage: 200 MG, TID
     Route: 048
     Dates: start: 20120330
  22. MAGMITT [Concomitant]
     Indication: CONSTIPATION
     Dosage: 500 MG, TID
     Route: 048
     Dates: start: 20120330, end: 20130219
  23. MAGMITT [Concomitant]
     Dosage: TOTAL DAILY DOSE 2250 MG
     Route: 048
     Dates: start: 20130220, end: 20130226
  24. MUCOSTA [Concomitant]
     Indication: PROPHYLAXIS AGAINST GASTROINTESTINAL ULCER
     Dosage: 100 MG, TID
     Route: 048
     Dates: start: 20120429
  25. ROHYPNOL [Concomitant]
     Indication: INSOMNIA
     Dosage: 2 MG, QD
     Route: 048
     Dates: start: 20120808, end: 20130208
  26. ROHYPNOL [Concomitant]
     Dosage: 4 MG, QD
     Route: 048
     Dates: start: 20130209
  27. CONSTAN [Concomitant]
     Indication: ANXIETY
     Dosage: 0.4 MG, TID
     Route: 048
     Dates: start: 20120720, end: 20130312
  28. CONSTAN [Concomitant]
     Dosage: TOTAL DAILY DOSE 1.6 MG
     Route: 048
     Dates: start: 20130313
  29. EURODIN (ESTAZOLAM) [Concomitant]
     Indication: INSOMNIA
     Dosage: 2 MG, QD
     Route: 048
     Dates: start: 20121010, end: 20130219
  30. HICEE [Concomitant]
     Indication: THIRST
     Dosage: 250 MG, TID
     Route: 048
     Dates: start: 20130122
  31. SM POWDER [Concomitant]
     Indication: ABDOMINAL DISCOMFORT
     Dosage: 1.3 G, PRN
     Route: 048
     Dates: start: 20130123

REACTIONS (2)
  - Schizophrenia [Recovering/Resolving]
  - Schizophrenia [Recovering/Resolving]
